FAERS Safety Report 12069631 (Version 10)
Quarter: 2016Q3

REPORT INFORMATION
  Report Type: Report from Study
  Country: CA (occurrence: CA)
  Receive Date: 20160211
  Receipt Date: 20160721
  Transmission Date: 20161109
  Serious: Yes (Hospitalization, Other)
  Sender: FDA-Public Use
  Company Number: CA-ROCHE-1405402

PATIENT
  Age: 41 Year
  Sex: Male
  Weight: 60.5 kg

DRUGS (12)
  1. AVASTIN [Suspect]
     Active Substance: BEVACIZUMAB
     Indication: GLIOBLASTOMA
     Route: 042
     Dates: start: 20140509, end: 20160427
  2. AVASTIN [Suspect]
     Active Substance: BEVACIZUMAB
     Route: 042
     Dates: start: 20141219
  3. BENADRYL [Suspect]
     Active Substance: DIPHENHYDRAMINE HYDROCHLORIDE
     Indication: PRODUCT USED FOR UNKNOWN INDICATION
     Route: 048
     Dates: start: 20140509, end: 20141017
  4. SOLU-MEDROL [Suspect]
     Active Substance: METHYLPREDNISOLONE SODIUM SUCCINATE
     Indication: PRODUCT USED FOR UNKNOWN INDICATION
     Route: 042
     Dates: start: 20140509
  5. TYLENOL [Concomitant]
     Active Substance: ACETAMINOPHEN
     Route: 048
     Dates: start: 20140509, end: 20141017
  6. AVASTIN [Suspect]
     Active Substance: BEVACIZUMAB
     Route: 042
     Dates: start: 20140711
  7. KEPPRA [Concomitant]
     Active Substance: LEVETIRACETAM
  8. DECADRON [Concomitant]
     Active Substance: DEXAMETHASONE
  9. PROCHLORAZINE [Concomitant]
  10. AVASTIN [Suspect]
     Active Substance: BEVACIZUMAB
     Route: 042
     Dates: start: 20150925
  11. AVASTIN [Suspect]
     Active Substance: BEVACIZUMAB
     Route: 042
     Dates: start: 20150501
  12. PANTOLOC [Concomitant]
     Active Substance: PANTOPRAZOLE SODIUM

REACTIONS (58)
  - Movement disorder [Not Recovered/Not Resolved]
  - Constipation [Unknown]
  - Hypoaesthesia [Not Recovered/Not Resolved]
  - Blood chloride increased [Unknown]
  - Blood alkaline phosphatase increased [Not Recovered/Not Resolved]
  - Blood lactate dehydrogenase increased [Not Recovered/Not Resolved]
  - Somnolence [Recovered/Resolved]
  - Heart rate decreased [Unknown]
  - Viral infection [Unknown]
  - Blood urea increased [Unknown]
  - Mean cell volume increased [Not Recovered/Not Resolved]
  - Bilirubin conjugated increased [Unknown]
  - White blood cell count decreased [Unknown]
  - Mean cell volume increased [Unknown]
  - Blood creatinine decreased [Unknown]
  - Fatigue [Unknown]
  - Neutrophil count increased [Not Recovered/Not Resolved]
  - Neutrophil count increased [Unknown]
  - Hyperglycaemia [Unknown]
  - Immobile [Not Recovered/Not Resolved]
  - Blood testosterone decreased [Not Recovered/Not Resolved]
  - Weight decreased [Unknown]
  - Pulpitis dental [Unknown]
  - Dizziness [Unknown]
  - Lymphocyte count decreased [Not Recovered/Not Resolved]
  - Haemoglobin decreased [Not Recovered/Not Resolved]
  - Red cell distribution width increased [Not Recovered/Not Resolved]
  - Blood albumin decreased [Unknown]
  - Alanine aminotransferase increased [Not Recovered/Not Resolved]
  - Aspartate aminotransferase increased [Not Recovered/Not Resolved]
  - Increased upper airway secretion [Not Recovered/Not Resolved]
  - Blood pressure increased [Unknown]
  - Medication error [Unknown]
  - Decreased appetite [Unknown]
  - Blood bilirubin increased [Unknown]
  - Grip strength decreased [Not Recovered/Not Resolved]
  - Red blood cell count decreased [Not Recovered/Not Resolved]
  - Micturition urgency [Unknown]
  - Fatigue [Not Recovered/Not Resolved]
  - Mobility decreased [Unknown]
  - Hepatic enzyme increased [Unknown]
  - Blood glucose increased [Not Recovered/Not Resolved]
  - Carcinoembryonic antigen increased [Not Recovered/Not Resolved]
  - Abdominal pain [Unknown]
  - Dyskinesia [Unknown]
  - Nausea [Unknown]
  - Vomiting [Unknown]
  - Platelet count decreased [Not Recovered/Not Resolved]
  - Haematocrit decreased [Unknown]
  - Blood bilirubin increased [Unknown]
  - Carcinoembryonic antigen increased [Unknown]
  - Gait disturbance [Not Recovered/Not Resolved]
  - Tooth abscess [Unknown]
  - Nasopharyngitis [Not Recovered/Not Resolved]
  - Mean cell haemoglobin increased [Unknown]
  - Haematocrit decreased [Not Recovered/Not Resolved]
  - Blood sodium increased [Unknown]
  - Lipase increased [Unknown]

NARRATIVE: CASE EVENT DATE: 20140725
